FAERS Safety Report 4517894-1 (Version None)
Quarter: 2004Q4

REPORT INFORMATION
  Report Type: 
  Country: None (occurrence: None)
  Receive Date: 20041203
  Receipt Date: 20041123
  Transmission Date: 20050328
  Serious: Yes (Life-Threatening, Hospitalization, Disabling)
  Sender: FDA-Public Use
  Company Number: US-MERCK-0411USA03832

PATIENT
  Age: 54 Year
  Sex: Female

DRUGS (4)
  1. VIOXX [Suspect]
     Indication: ARTHRITIS
     Route: 048
     Dates: start: 20010101
  2. GLUCOPHAGE [Concomitant]
     Route: 065
  3. LISINOPRIL-BC [Concomitant]
     Route: 065
  4. GLYBURIDE [Concomitant]
     Route: 065

REACTIONS (3)
  - ARTHRITIS INFECTIVE [None]
  - ARTHROPATHY [None]
  - PULMONARY EMBOLISM [None]
